FAERS Safety Report 5133811-8 (Version None)
Quarter: 2006Q4

REPORT INFORMATION
  Report Type: 
  Country: None (occurrence: None)
  Receive Date: 20061018
  Receipt Date: 20060906
  Transmission Date: 20070319
  Serious: Yes (Other)
  Sender: FDA-Public Use
  Company Number: 2006110223

PATIENT
  Age: 53 Year
  Sex: Male
  Weight: 81.1939 kg

DRUGS (1)
  1. VIAGRA [Suspect]
     Indication: ERECTILE DYSFUNCTION
     Dates: start: 20060801, end: 20060801

REACTIONS (3)
  - BREATH SOUNDS ABNORMAL [None]
  - DYSPNOEA [None]
  - NASAL CONGESTION [None]
